FAERS Safety Report 5412999-5 (Version None)
Quarter: 2007Q3

REPORT INFORMATION
  Report Type: 
  Country: None (occurrence: None)
  Receive Date: 20070809
  Receipt Date: 20070727
  Transmission Date: 20080115
  Serious: Yes (Other)
  Sender: FDA-Public Use
  Company Number: 028-20785-07070112

PATIENT
  Age: 68 Year
  Sex: Male

DRUGS (3)
  1. THALOMID [Suspect]
     Indication: MULTIPLE MYELOMA
     Dosage: 100-50 MG, ORAL, 100 MG, ORAL
     Route: 048
     Dates: end: 20070601
  2. THALOMID [Suspect]
     Indication: MULTIPLE MYELOMA
     Dosage: 100-50 MG, ORAL, 100 MG, ORAL
     Route: 048
     Dates: start: 20070601
  3. NARCOTICS [Concomitant]

REACTIONS (3)
  - COLONIC PSEUDO-OBSTRUCTION [None]
  - ILEUS PARALYTIC [None]
  - PNEUMONIA [None]
